FAERS Safety Report 4382114-8 (Version None)
Quarter: 2004Q2

REPORT INFORMATION
  Report Type: 
  Country: None (occurrence: None)
  Receive Date: 20040603
  Receipt Date: 20030404
  Transmission Date: 20050107
  Serious: Yes (Hospitalization)
  Sender: FDA-Public Use
  Company Number: 200313173US

PATIENT
  Age: 64 Year
  Sex: Male
  Weight: 89.6 kg

DRUGS (11)
  1. ENOXAPARIN SODIUM [Suspect]
     Indication: DEEP VEIN THROMBOSIS
     Dosage: 60 MG BID SC
     Route: 058
     Dates: start: 20020219, end: 20020221
  2. WARFARIN SODIUM [Suspect]
     Indication: DEEP VEIN THROMBOSIS
     Dosage: 5 MG QD PO
     Route: 048
     Dates: start: 20020201
  3. ASPIRIN [Concomitant]
  4. BENZOCAINE [Concomitant]
  5. DIPHENHYDRAMINE HCL [Concomitant]
  6. DOCUSATE [Concomitant]
  7. HEMORRHOIDAL SUPPOSITORY [Concomitant]
  8. HYDROCORTISONE [Concomitant]
  9. LORAZEPAM [Concomitant]
  10. MIDODRINE HCL [Concomitant]
  11. FOLIC ACID, VITAMINS NOS (NEPHROCAPS) [Concomitant]

REACTIONS (1)
  - GASTROINTESTINAL HAEMORRHAGE [None]
